FAERS Safety Report 7021808 (Version 2)
Quarter: 2014Q3

REPORT INFORMATION
  Report Type: Spontaneous
  Country: KR (occurrence: KR)
  Receive Date: 20090612
  Receipt Date: 20140901
  Transmission Date: 20150326
  Serious: Yes (Other)
  Sender: FDA-Public Use
  Company Number: KR-PFIZER INC-2009222256

PATIENT
  Age: 52 Year
  Sex: Female

DRUGS (2)
  1. SUNITINIB MALATE [Suspect]
     Active Substance: SUNITINIB MALATE
     Dosage: 25 MG, DAILY
  2. SUNITINIB MALATE [Suspect]
     Active Substance: SUNITINIB MALATE
     Indication: ANGIOSARCOMA
     Dosage: 37.5 MG, DAILY

REACTIONS (3)
  - Microangiopathic haemolytic anaemia [Not Recovered/Not Resolved]
  - Asthenia [Unknown]
  - Thrombocytopenia [Not Recovered/Not Resolved]
